FAERS Safety Report 10748537 (Version 1)
Quarter: 2015Q1

REPORT INFORMATION
  Report Type: Spontaneous
  Country: FR (occurrence: FR)
  Receive Date: 20150129
  Receipt Date: 20150129
  Transmission Date: 20150721
  Serious: Yes (Hospitalization)
  Sender: FDA-Public Use
  Company Number: FR-BRISTOL-MYERS SQUIBB COMPANY-BMS-2015-002718

PATIENT
  Age: 86 Year
  Sex: Female

DRUGS (11)
  1. ZYRTEC [Concomitant]
     Active Substance: CETIRIZINE HYDROCHLORIDE
  2. CELLCEPT [Concomitant]
     Active Substance: MYCOPHENOLATE MOFETIL\MYCOPHENOLATE MOFETIL HYDROCHLORIDE
  3. PSYLIA [Concomitant]
  4. DOLIPRANE [Concomitant]
     Active Substance: ACETAMINOPHEN
  5. DIFFU-K [Concomitant]
     Active Substance: POTASSIUM CHLORIDE
  6. NOROXINE [Interacting]
     Active Substance: NORFLOXACIN
     Indication: PNEUMONIA KLEBSIELLA
     Dosage: UNK
     Route: 048
     Dates: start: 20130131, end: 20130204
  7. ZYLORIC [Concomitant]
     Active Substance: ALLOPURINOL
  8. CARDENSIEL [Concomitant]
     Active Substance: BISOPROLOL FUMARATE
  9. EDUCTYL [Concomitant]
     Active Substance: POTASSIUM BITARTRATE\SODIUM BICARBONATE
  10. COUMADINE [Suspect]
     Active Substance: WARFARIN SODIUM
     Indication: PRODUCT USED FOR UNKNOWN INDICATION
     Dosage: UNK
     Route: 048
     Dates: end: 20130204
  11. NOVONORM [Concomitant]
     Active Substance: REPAGLINIDE

REACTIONS (5)
  - Accidental overdose [Recovered/Resolved]
  - Drug interaction [Recovered/Resolved]
  - Sepsis [Recovered/Resolved]
  - Acute kidney injury [Recovered/Resolved]
  - Haematuria [Recovered/Resolved]

NARRATIVE: CASE EVENT DATE: 20130204
